FAERS Safety Report 17762256 (Version 4)
Quarter: 2020Q3

REPORT INFORMATION
  Report Type: Report from Study
  Country: None (occurrence: DE)
  Receive Date: 20200508
  Receipt Date: 20200827
  Transmission Date: 20201102
  Serious: Yes (Hospitalization)
  Sender: FDA-Public Use
  Company Number: DE-ABBVIE-20P-062-3387945-00

PATIENT
  Age: 78 Year
  Sex: Female

DRUGS (34)
  1. VENETOCLAX. [Suspect]
     Active Substance: VENETOCLAX
     Indication: ACUTE MYELOID LEUKAEMIA
     Route: 048
     Dates: start: 20200121, end: 20200121
  2. VENETOCLAX. [Suspect]
     Active Substance: VENETOCLAX
     Route: 048
     Dates: start: 20200122, end: 20200122
  3. VENETOCLAX. [Suspect]
     Active Substance: VENETOCLAX
     Route: 048
     Dates: start: 20200508
  4. FOSRENOL [Concomitant]
     Active Substance: LANTHANUM CARBONATE
     Indication: PROPHYLAXIS
     Route: 048
     Dates: start: 20200120, end: 20200125
  5. COTRIM FORTE [Concomitant]
     Active Substance: SULFAMETHOXAZOLE\TRIMETHOPRIM
     Indication: INFECTION PROPHYLAXIS
     Route: 048
     Dates: start: 20200201
  6. FENTANYL. [Concomitant]
     Active Substance: FENTANYL
     Route: 062
     Dates: start: 20200430, end: 20200506
  7. TAVOR [Concomitant]
     Indication: NAUSEA
  8. ALVOCIDIB [Suspect]
     Active Substance: ALVOCIDIB
     Dosage: CYCLE 1, DAY 2
     Route: 042
     Dates: start: 20200122, end: 20200122
  9. NORMAL SALINE SOLUTION (0.9% SODIUM CHLORIDE) [Concomitant]
     Indication: PROPHYLAXIS
     Route: 042
     Dates: start: 20200120, end: 20200126
  10. ZOFRAN [Concomitant]
     Active Substance: ONDANSETRON HYDROCHLORIDE
     Indication: NAUSEA
     Route: 048
     Dates: start: 20200121
  11. TAVOR [Concomitant]
     Indication: VOMITING
     Route: 048
     Dates: start: 20200418, end: 20200512
  12. VENETOCLAX. [Suspect]
     Active Substance: VENETOCLAX
     Route: 048
     Dates: start: 20200411, end: 20200506
  13. L?TYHROXIN [Concomitant]
     Indication: HYPOTHYROIDISM
     Route: 048
     Dates: start: 20200103
  14. VENETOCLAX. [Suspect]
     Active Substance: VENETOCLAX
     Route: 048
     Dates: start: 20200123, end: 20200123
  15. VENETOCLAX. [Suspect]
     Active Substance: VENETOCLAX
     Route: 048
     Dates: start: 20200124, end: 20200320
  16. TAVEGIL [Concomitant]
     Active Substance: CLEMASTINE FUMARATE
     Indication: INSOMNIA
     Route: 048
     Dates: start: 201908
  17. FENTANYL. [Concomitant]
     Active Substance: FENTANYL
     Indication: BACK PAIN
     Route: 048
     Dates: start: 20200411, end: 20200511
  18. MIRTAZAPIN [Concomitant]
     Active Substance: MIRTAZAPINE
     Indication: INSOMNIA
     Route: 048
     Dates: start: 20200320
  19. AMOXICLAVULAN [Concomitant]
     Indication: INFECTION PROPHYLAXIS
     Route: 048
     Dates: start: 20200415, end: 20200616
  20. SODIUM PICOSULFATE [Concomitant]
     Active Substance: SODIUM PICOSULFATE
     Indication: CONSTIPATION PROPHYLAXIS
     Route: 048
     Dates: start: 20200408, end: 20200611
  21. CLEXANE [Concomitant]
     Active Substance: ENOXAPARIN SODIUM
     Indication: THROMBOSIS PROPHYLAXIS
     Route: 058
     Dates: start: 20200430, end: 20200511
  22. VENETOCLAX. [Suspect]
     Active Substance: VENETOCLAX
     Route: 048
     Dates: start: 20200323, end: 20200409
  23. MIRTAZAPIN [Concomitant]
     Active Substance: MIRTAZAPINE
     Indication: DEPRESSION
  24. ALLOPURINOL. [Concomitant]
     Active Substance: ALLOPURINOL
     Indication: PROPHYLAXIS
     Route: 048
     Dates: start: 20200120, end: 20200125
  25. FENTANYL. [Concomitant]
     Active Substance: FENTANYL
     Indication: BACK PAIN
     Route: 062
     Dates: start: 20200503, end: 20200505
  26. ACICLOVIR [Concomitant]
     Active Substance: ACYCLOVIR
     Indication: INFECTION PROPHYLAXIS
     Route: 048
     Dates: start: 20200417, end: 20200603
  27. METAMIZOL [Concomitant]
     Active Substance: METAMIZOLE SODIUM
     Indication: BACK PAIN
     Route: 048
     Dates: start: 20200430, end: 20200508
  28. ALVOCIDIB [Suspect]
     Active Substance: ALVOCIDIB
     Dosage: CYCLE 1, DAY 3
     Route: 042
     Dates: start: 20200123, end: 20200123
  29. ALVOCIDIB [Suspect]
     Active Substance: ALVOCIDIB
     Dosage: DAYS 1?3 OF EACH 28?DAY CYCLE.
     Route: 042
     Dates: start: 20200218, end: 20200319
  30. ALVOCIDIB [Suspect]
     Active Substance: ALVOCIDIB
     Dosage: DAYS 1?3 OF EACH 28?DAY CYCLE.
     Route: 042
     Dates: start: 20200415
  31. VALSARTAN. [Concomitant]
     Active Substance: VALSARTAN
     Indication: HYPERTENSION
     Dosage: 1?0?0,5
     Route: 048
     Dates: end: 20200630
  32. FENTANYL. [Concomitant]
     Active Substance: FENTANYL
     Route: 062
     Dates: start: 20200319, end: 20200511
  33. ALVOCIDIB [Suspect]
     Active Substance: ALVOCIDIB
     Indication: ACUTE MYELOID LEUKAEMIA
     Dosage: CYCLE 1, DAY 1
     Route: 042
     Dates: start: 20200121, end: 20200121
  34. ZOPICLON [Concomitant]
     Active Substance: ZOPICLONE
     Indication: INSOMNIA
     Route: 048
     Dates: start: 201907

REACTIONS (2)
  - Nausea [Recovered/Resolved]
  - Spinal fracture [Recovered/Resolved]

NARRATIVE: CASE EVENT DATE: 20200430
